FAERS Safety Report 16321573 (Version 1)
Quarter: 2019Q2

REPORT INFORMATION
  Report Type: Spontaneous
  Country: DE (occurrence: DE)
  Receive Date: 20190516
  Receipt Date: 20190516
  Transmission Date: 20190711
  Serious: Yes (Other)
  Sender: FDA-Public Use
  Company Number: DE-ASTRAZENECA-2019SE73265

PATIENT
  Sex: Male

DRUGS (2)
  1. FASENRA [Suspect]
     Active Substance: BENRALIZUMAB
     Route: 058
     Dates: start: 201504
  2. SYMBICORT [Suspect]
     Active Substance: BUDESONIDE\FORMOTEROL FUMARATE DIHYDRATE
     Dosage: 320 ???G 2 TIMES 1 DOSAGE INHALATION
     Route: 055

REACTIONS (4)
  - Dyspnoea [Recovered/Resolved]
  - Asthma [Recovered/Resolved]
  - Gastric haemorrhage [Recovered/Resolved]
  - Wheezing [Recovered/Resolved]
